FAERS Safety Report 5628983-2 (Version None)
Quarter: 2008Q1

REPORT INFORMATION
  Report Type: 
  Country: None (occurrence: None)
  Receive Date: 20080214
  Receipt Date: 20080130
  Transmission Date: 20080703
  Serious: Yes (Hospitalization)
  Sender: FDA-Public Use
  Company Number: MEDI-0006507

PATIENT
  Age: 27 Year
  Sex: Male

DRUGS (2)
  1. ETHYOL [Suspect]
     Indication: NEOPLASM MALIGNANT
     Dosage: 500 MG, SUBCUTANEOUS
     Route: 058
  2. RADIATION THERAPY [Concomitant]

REACTIONS (8)
  - HEPATIC ENZYME INCREASED [None]
  - INJECTION SITE ERYTHEMA [None]
  - MUCOSAL INFLAMMATION [None]
  - OROPHARYNGEAL BLISTERING [None]
  - PHARYNGOLARYNGEAL PAIN [None]
  - PRURITUS [None]
  - RASH GENERALISED [None]
  - RASH PAPULAR [None]
